FAERS Safety Report 9929216 (Version 1)
Quarter: 2014Q1

REPORT INFORMATION
  Report Type: Report from Study
  Country: US (occurrence: US)
  Receive Date: 20140227
  Receipt Date: 20140227
  Transmission Date: 20141002
  Serious: Yes (Death, Other)
  Sender: FDA-Public Use
  Company Number: US-ROCHE-1327015

PATIENT
  Age: 47 Year
  Sex: Male
  Weight: 108.6 kg

DRUGS (33)
  1. AVASTIN [Suspect]
     Indication: ANAPLASTIC ASTROCYTOMA
     Route: 042
  2. AVASTIN [Suspect]
     Dosage: START DATE : 13/MAY/2011
     Route: 042
  3. XELODA [Suspect]
     Indication: PRODUCT USED FOR UNKNOWN INDICATION
     Dosage: START DATE 31/MAY/2011
     Route: 048
  4. XELODA [Suspect]
     Dosage: START DATE 19/MAY/2011
     Route: 048
  5. DECADRON [Concomitant]
     Route: 042
     Dates: start: 20110610
  6. DECADRON [Concomitant]
     Dosage: X4 PO
     Route: 048
  7. DECADRON [Concomitant]
     Dosage: X4 PO
     Route: 048
     Dates: start: 20110330
  8. DECADRON [Concomitant]
     Dosage: X1
     Route: 048
     Dates: start: 20110314
  9. CELEBREX [Concomitant]
     Route: 048
  10. CELEBREX [Concomitant]
     Route: 048
  11. RAPAMUNE [Concomitant]
     Route: 048
  12. RAPAMUNE [Concomitant]
     Route: 048
  13. RAPAMUNE [Concomitant]
     Dosage: INCREASED TO 3MG
     Route: 065
     Dates: start: 20110405, end: 20110412
  14. LEVAQUIN [Concomitant]
     Route: 048
  15. ROCEPHIN [Concomitant]
     Dosage: LEFT THIGH AS DIRECTED IN 1% LIDOCAINE
     Route: 065
  16. CLONIDINE [Concomitant]
     Route: 048
     Dates: start: 20110330
  17. FLAGYL [Concomitant]
     Route: 048
  18. ALDACTONE (UNITED STATES) [Concomitant]
     Route: 048
  19. VALPROIC ACID [Concomitant]
     Route: 048
  20. CITALOPRAM [Concomitant]
     Route: 048
  21. OXCARBAZEPINE [Concomitant]
     Route: 048
  22. TRAZODONE [Concomitant]
     Dosage: AT BEDTIME
     Route: 048
  23. DEXTROMETHORPHAN [Concomitant]
     Route: 048
  24. DEXTROMETHORPHAN [Concomitant]
     Route: 048
  25. DEXTROMETHORPHAN [Concomitant]
     Route: 042
     Dates: start: 20110304
  26. VANCOMYCIN [Concomitant]
     Route: 042
     Dates: start: 20110322
  27. VANCOMYCIN [Concomitant]
     Route: 042
     Dates: start: 20110322
  28. VOTRIENT [Concomitant]
     Route: 048
     Dates: end: 20110317
  29. VOTRIENT [Concomitant]
     Route: 048
     Dates: start: 20110307
  30. LASIX [Concomitant]
     Route: 042
     Dates: start: 20110318
  31. SOLU-MEDROL [Concomitant]
     Route: 042
  32. KCL-RETARD ZYMA [Concomitant]
     Route: 048
  33. ZYVOX [Concomitant]
     Dosage: X2
     Route: 048

REACTIONS (21)
  - Death [Fatal]
  - Blood pressure increased [Recovered/Resolved]
  - Productive cough [Unknown]
  - Discomfort [Unknown]
  - Nausea [Unknown]
  - Headache [Unknown]
  - Hyperhidrosis [Unknown]
  - Vomiting [Unknown]
  - Pyrexia [Unknown]
  - Incontinence [Unknown]
  - Rash [Unknown]
  - Dyspnoea [Unknown]
  - Asthenia [Unknown]
  - Joint swelling [Unknown]
  - Malaise [Unknown]
  - Ecchymosis [Unknown]
  - Dysphagia [Unknown]
  - Rash [Unknown]
  - Fatigue [Unknown]
  - Cough [Unknown]
  - Hypertension [Not Recovered/Not Resolved]
